FAERS Safety Report 6988908-4 (Version None)
Quarter: 2010Q3

REPORT INFORMATION
  Report Type: 
  Country: None (occurrence: None)
  Receive Date: 20100916
  Receipt Date: 20090727
  Transmission Date: 20110219
  Serious: Yes (Other)
  Sender: FDA-Public Use
  Company Number: US-PFIZER INC-2009225968

PATIENT
  Sex: Male
  Weight: 62.132 kg

DRUGS (7)
  1. LYRICA [Suspect]
     Indication: MUSCLE SPASMS
     Dosage: 50 MG, 3X/DAY
     Dates: start: 20090101
  2. LYRICA [Suspect]
  3. LYRICA [Suspect]
     Indication: PAIN IN EXTREMITY
  4. CLONAZEPAM [Concomitant]
     Dosage: UNK
  5. SEROQUEL [Concomitant]
     Dosage: UNK
  6. ZOLOFT [Concomitant]
     Dosage: UNK
  7. TYLENOL [Concomitant]
     Dosage: UNK

REACTIONS (5)
  - DYSPNOEA [None]
  - GASTROOESOPHAGEAL REFLUX DISEASE [None]
  - MIDDLE INSOMNIA [None]
  - NAUSEA [None]
  - PERIPHERAL NERVE INJURY [None]
